FAERS Safety Report 23391006 (Version 1)
Quarter: 2024Q1

REPORT INFORMATION
  Report Type: Report from Study
  Country: US (occurrence: None)
  Receive Date: 20240111
  Receipt Date: 20240111
  Transmission Date: 20240409
  Serious: Yes (Hospitalization, Other)
  Sender: FDA-Public Use
  Company Number: 2024A002124

PATIENT
  Age: 25634 Day
  Sex: Female

DRUGS (1)
  1. TAGRISSO [Suspect]
     Active Substance: OSIMERTINIB
     Route: 048

REACTIONS (7)
  - Neoplasm malignant [Unknown]
  - Influenza [Recovered/Resolved]
  - Alopecia [Not Recovered/Not Resolved]
  - Panic reaction [Unknown]
  - Fear [Unknown]
  - Intentional dose omission [Unknown]
  - Product use issue [Unknown]

NARRATIVE: CASE EVENT DATE: 20231229
